FAERS Safety Report 6168490-4 (Version None)
Quarter: 2009Q2

REPORT INFORMATION
  Report Type: 
  Country: None (occurrence: None)
  Receive Date: 20090427
  Receipt Date: 20090417
  Transmission Date: 20091009
  Serious: Yes (Other)
  Sender: FDA-Public Use
  Company Number: A0780365A

PATIENT
  Sex: Female

DRUGS (3)
  1. LOVAZA [Suspect]
     Indication: DRUG USE FOR UNKNOWN INDICATION
     Route: 048
  2. NIASPAN [Concomitant]
  3. TRICOR [Concomitant]

REACTIONS (2)
  - DRUG INTOLERANCE [None]
  - HEPATIC ENZYME INCREASED [None]
